FAERS Safety Report 10089094 (Version 1)
Quarter: 2014Q2

REPORT INFORMATION
  Report Type: Spontaneous
  Country: US (occurrence: None)
  Receive Date: 20140418
  Receipt Date: 20140418
  Transmission Date: 20141212
  Serious: Yes (Disabling)
  Sender: FDA-Public Use
  Company Number: None

PATIENT
  Age: 35 Year
  Sex: Female
  Weight: 77.11 kg

DRUGS (1)
  1. LAMICTAL [Suspect]

REACTIONS (4)
  - Headache [None]
  - Nausea [None]
  - Mood altered [None]
  - Product substitution issue [None]
